FAERS Safety Report 5691815-0 (Version None)
Quarter: 2008Q2

REPORT INFORMATION
  Report Type: 
  Country: None (occurrence: None)
  Receive Date: 20080401
  Receipt Date: 20080401
  Transmission Date: 20081010
  Serious: No
  Sender: FDA-Public Use
  Company Number: None

PATIENT
  Sex: Female

DRUGS (1)
  1. READI-CAT 2 2.1% W/V EXEM [Suspect]
     Indication: COMPUTERISED TOMOGRAM
     Dosage: 700ML OVER 60 MINUTES PO
     Route: 048
     Dates: start: 20080324, end: 20080324

REACTIONS (5)
  - ABDOMINAL DISCOMFORT [None]
  - CHROMATURIA [None]
  - POLLAKIURIA [None]
  - TENDERNESS [None]
  - THROAT IRRITATION [None]
